FAERS Safety Report 8277509-6 (Version None)
Quarter: 2012Q2

REPORT INFORMATION
  Report Type: 
  Country: None (occurrence: None)
  Receive Date: 20120412
  Receipt Date: 20120322
  Transmission Date: 20120825
  Serious: Yes (Other)
  Sender: FDA-Public Use
  Company Number: US-BAYER-2011-036177

PATIENT
  Sex: Female

DRUGS (3)
  1. MIRENA [Suspect]
     Dosage: 20 ?G, CONT
     Route: 015
     Dates: end: 20101013
  2. IBUPROFEN [Concomitant]
  3. NAPROSYN [Concomitant]
     Dosage: 500 MG, BID

REACTIONS (4)
  - PAIN [None]
  - COMPLICATION OF DEVICE REMOVAL [None]
  - ANXIETY [None]
  - EMOTIONAL DISTRESS [None]
